FAERS Safety Report 25104855 (Version 1)
Quarter: 2025Q1

REPORT INFORMATION
  Report Type: Spontaneous
  Country: US (occurrence: US)
  Receive Date: 20250321
  Receipt Date: 20250321
  Transmission Date: 20250409
  Serious: No
  Sender: Day One Biopharmaceuticals
  Company Number: US-Day One Biopharmaceuticals Inc.-2025US000362

PATIENT

DRUGS (1)
  1. OJEMDA [Suspect]
     Active Substance: TOVORAFENIB
     Indication: Product used for unknown indication
     Route: 065

REACTIONS (3)
  - Hyperbilirubinaemia [Not Recovered/Not Resolved]
  - Rash maculo-papular [Not Recovered/Not Resolved]
  - Dermatitis acneiform [Not Recovered/Not Resolved]

NARRATIVE: CASE EVENT DATE: 20250306
